FAERS Safety Report 4379971-8 (Version None)
Quarter: 2004Q2

REPORT INFORMATION
  Report Type: 
  Country: None (occurrence: None)
  Receive Date: 20040614
  Receipt Date: 20040604
  Transmission Date: 20050107
  Serious: Yes (Other)
  Sender: FDA-Public Use
  Company Number: FR-JNJFOC-20040501499

PATIENT
  Sex: Female
  Weight: 2.4 kg

DRUGS (8)
  1. PROPULSID [Suspect]
     Indication: GASTROOESOPHAGEAL REFLUX DISEASE
     Dosage: 0.2 MG, 3 IN 1 DAY, ORAL; 0.6 MG, 3 IN 1 DAY, ORAL
     Route: 048
     Dates: start: 20040506, end: 20040507
  2. PROPULSID [Suspect]
     Indication: GASTROOESOPHAGEAL REFLUX DISEASE
     Dosage: 0.2 MG, 3 IN 1 DAY, ORAL; 0.6 MG, 3 IN 1 DAY, ORAL
     Route: 048
     Dates: start: 20040603
  3. UVESTEROL (UVESTEROL) UNKNOWN [Concomitant]
  4. IRON SULFATE (FERROUS SULFATE) UNKNOWN [Concomitant]
  5. RIFAMYCIN (RIFAMYCIN)  UNKNOWN [Concomitant]
  6. NEO RECORMON (EPOETIN BETA) UNKNOWN [Concomitant]
  7. MOTILIUM (DOMPERIDONE) SUSPENSION [Concomitant]
  8. DEBRIDAT (TRIMEBUTINE MALEATE) UNKNOWN [Concomitant]

REACTIONS (1)
  - ELECTROCARDIOGRAM QT CORRECTED INTERVAL PROLONGED [None]
